FAERS Safety Report 5523349-8 (Version None)
Quarter: 2007Q4

REPORT INFORMATION
  Report Type: 
  Country: None (occurrence: None)
  Receive Date: 20071121
  Receipt Date: 20071114
  Transmission Date: 20080405
  Serious: Yes (Hospitalization)
  Sender: FDA-Public Use
  Company Number: B0490135A

PATIENT
  Age: 83 Year
  Sex: Female

DRUGS (11)
  1. SEREVENT [Suspect]
     Indication: DRUG USE FOR UNKNOWN INDICATION
     Route: 055
  2. RAMIPRIL [Suspect]
     Indication: DRUG USE FOR UNKNOWN INDICATION
     Route: 065
  3. ISOSORBIDE MONONITRATE [Concomitant]
     Route: 065
  4. ASPIRIN [Concomitant]
     Route: 065
  5. AMLODIPINE [Concomitant]
     Route: 065
  6. FUROSEMIDE [Concomitant]
     Route: 065
  7. LEVOTHYROXINE SODIUM [Concomitant]
     Route: 065
  8. SIMVASTATIN [Concomitant]
     Route: 065
  9. DIHYDROCODEINE [Concomitant]
     Route: 065
  10. GABAPENTIN [Concomitant]
     Route: 065
  11. CODEINE SUL TAB [Concomitant]
     Route: 065

REACTIONS (2)
  - GAIT DISTURBANCE [None]
  - MUSCLE SPASMS [None]
